FAERS Safety Report 11088710 (Version 1)
Quarter: 2015Q2

REPORT INFORMATION
  Report Type: Spontaneous
  Country: US (occurrence: US)
  Receive Date: 20150504
  Receipt Date: 20150504
  Transmission Date: 20150821
  Serious: No
  Sender: FDA-Public Use
  Company Number: US-GLAXOSMITHKLINE-US2015GSK059431

PATIENT
  Sex: Male

DRUGS (10)
  1. LISINOPRIL. [Concomitant]
     Active Substance: LISINOPRIL
  2. LYRICA [Concomitant]
     Active Substance: PREGABALIN
  3. DESLORATADINE. [Concomitant]
     Active Substance: DESLORATADINE
  4. MONTELUKAST [Concomitant]
     Active Substance: MONTELUKAST SODIUM
  5. SODIUM POLYSTYRENE SULFONATE. [Concomitant]
     Active Substance: SODIUM POLYSTYRENE SULFONATE
  6. VOTRIENT [Suspect]
     Active Substance: PAZOPANIB HYDROCHLORIDE
     Indication: RENAL CANCER
     Dosage: 200 MG, QD
     Route: 048
     Dates: start: 20141128
  7. TAMSULOSIN [Concomitant]
     Active Substance: TAMSULOSIN
  8. CEPHALEXIN. [Concomitant]
     Active Substance: CEPHALEXIN
  9. TRADJENTA [Concomitant]
     Active Substance: LINAGLIPTIN
  10. ZETIA [Concomitant]
     Active Substance: EZETIMIBE

REACTIONS (2)
  - Therapy cessation [Recovered/Resolved]
  - Surgery [Recovered/Resolved]
